FAERS Safety Report 6190521-6 (Version None)
Quarter: 2009Q2

REPORT INFORMATION
  Report Type: 
  Country: None (occurrence: None)
  Receive Date: 20090513
  Receipt Date: 20090513
  Transmission Date: 20091009
  Serious: Yes (Hospitalization)
  Sender: FDA-Public Use
  Company Number: None

PATIENT
  Sex: Female
  Weight: 99.7913 kg

DRUGS (2)
  1. BUPROPION HCL [Suspect]
     Indication: ANXIETY
     Dosage: 2 TABS DAILY PO
     Route: 048
     Dates: start: 20071213, end: 20080103
  2. BUPROPION HCL [Suspect]
     Indication: DEPRESSION
     Dosage: 2 TABS DAILY PO
     Route: 048
     Dates: start: 20071213, end: 20080103

REACTIONS (4)
  - CARDIAC ARREST [None]
  - PHARYNGEAL OEDEMA [None]
  - SWOLLEN TONGUE [None]
  - URTICARIA [None]
